FAERS Safety Report 19673229 (Version 2)
Quarter: 2021Q3

REPORT INFORMATION
  Report Type: Spontaneous
  Country: NZ (occurrence: NZ)
  Receive Date: 20210809
  Receipt Date: 20210831
  Transmission Date: 20211014
  Serious: Yes (Other)
  Sender: FDA-Public Use
  Company Number: NZ-LUPIN PHARMACEUTICALS INC.-2021-14144

PATIENT
  Age: 61 Year
  Sex: Male

DRUGS (4)
  1. VORICONAZOLE. [Suspect]
     Active Substance: VORICONAZOLE
     Dosage: UNK (RESTARTED)
     Route: 065
     Dates: start: 201812
  2. VORICONAZOLE. [Suspect]
     Active Substance: VORICONAZOLE
     Indication: BRONCHOPULMONARY ASPERGILLOSIS
     Dosage: 200 MILLIGRAM, BID
     Route: 065
     Dates: start: 201804
  3. ITRACONAZOLE. [Suspect]
     Active Substance: ITRACONAZOLE
     Indication: BRONCHOPULMONARY ASPERGILLOSIS
     Dosage: 200 MILLIGRAM, BID
     Route: 065
     Dates: start: 2017
  4. ITRACONAZOLE. [Suspect]
     Active Substance: ITRACONAZOLE
     Dosage: UNK (RESTARTED)
     Route: 065
     Dates: start: 201810

REACTIONS (1)
  - Drug resistance [Unknown]
